FAERS Safety Report 9147654 (Version 1)
Quarter: 2013Q1

REPORT INFORMATION
  Report Type: Spontaneous
  Country: DE (occurrence: DE)
  Receive Date: 20130307
  Receipt Date: 20130307
  Transmission Date: 20140127
  Serious: Yes (Other)
  Sender: FDA-Public Use
  Company Number: DE-MYLANLABS-2013S1004856

PATIENT
  Age: 28 Year
  Sex: Female

DRUGS (3)
  1. DOXEPIN [Suspect]
     Indication: BORDERLINE PERSONALITY DISORDER
     Dosage: 100 [MG/D ]/ BEGIN OF THERAPY NOT KNOWN, AT LEAST DURING THE 3RD TRIMESTER
     Route: 048
  2. DIAZEPAM [Suspect]
     Indication: BORDERLINE PERSONALITY DISORDER
     Route: 048
  3. INSULIN [Concomitant]
     Indication: TYPE 2 DIABETES MELLITUS

REACTIONS (2)
  - Suicide attempt [Unknown]
  - Exposure during pregnancy [Unknown]
